FAERS Safety Report 24594888 (Version 1)
Quarter: 2024Q4

REPORT INFORMATION
  Report Type: Spontaneous
  Country: CN (occurrence: CN)
  Receive Date: 20241108
  Receipt Date: 20241108
  Transmission Date: 20250115
  Serious: Yes (Hospitalization)
  Sender: NOVARTIS
  Company Number: CN-002147023-NVSC2024CN214089

PATIENT
  Age: 67 Year
  Sex: Male
  Weight: 48 kg

DRUGS (2)
  1. TEGRETOL [Suspect]
     Active Substance: CARBAMAZEPINE
     Indication: Epilepsy
     Dosage: 0.1 G, BID
     Route: 048
     Dates: start: 20240918, end: 20240921
  2. TEGRETOL [Suspect]
     Active Substance: CARBAMAZEPINE
     Dosage: 0.100 G, QD
     Route: 048
     Dates: start: 20240921, end: 20241018

REACTIONS (3)
  - Drug eruption [Not Recovered/Not Resolved]
  - Trismus [Unknown]
  - Odynophagia [Unknown]

NARRATIVE: CASE EVENT DATE: 20241018
